FAERS Safety Report 18078111 (Version 1)
Quarter: 2020Q3

REPORT INFORMATION
  Report Type: Spontaneous
  Country: US (occurrence: US)
  Receive Date: 20200727
  Receipt Date: 20200727
  Transmission Date: 20201103
  Serious: No
  Sender: FDA-Public Use
  Company Number: US-SEATTLE GENETICS-2020SGN02370

PATIENT
  Age: 49 Year
  Sex: Female

DRUGS (2)
  1. XELODA [Suspect]
     Active Substance: CAPECITABINE
     Indication: BREAST CANCER METASTATIC
  2. TUKYSA [Suspect]
     Active Substance: TUCATINIB
     Indication: BREAST CANCER METASTATIC
     Dosage: 300 MG, BID
     Route: 048
     Dates: start: 20200522

REACTIONS (12)
  - Regurgitation [Unknown]
  - Fatigue [Unknown]
  - Product storage error [Unknown]
  - Neuropathy peripheral [Unknown]
  - Foreign body in throat [Unknown]
  - Throat irritation [Unknown]
  - Feeling abnormal [Unknown]
  - Pharyngeal erythema [Unknown]
  - Dysphonia [Unknown]
  - Product solubility abnormal [Unknown]
  - Gastrooesophageal reflux disease [Unknown]
  - Product dispensing error [Unknown]
